FAERS Safety Report 5594028-6 (Version None)
Quarter: 2008Q1

REPORT INFORMATION
  Report Type: 
  Country: None (occurrence: None)
  Receive Date: 20080116
  Receipt Date: 20000508
  Transmission Date: 20080703
  Serious: Yes (Death, Congenital Anomaly)
  Sender: FDA-Public Use
  Company Number: CA-MERCK-99100870B1

PATIENT
  Age: -2 Day
  Sex: Male
  Weight: 2 kg

DRUGS (2)
  1. COZAAR [Suspect]
     Indication: PREGNANCY INDUCED HYPERTENSION
     Route: 064
     Dates: start: 19990510, end: 19990823
  2. ALDOMET [Concomitant]
     Indication: PREGNANCY INDUCED HYPERTENSION
     Route: 064
     Dates: start: 19990823

REACTIONS (6)
  - CONGENITAL MUSCULOSKELETAL ANOMALY [None]
  - DYSMORPHISM [None]
  - PULMONARY MALFORMATION [None]
  - RENAL FAILURE [None]
  - SKULL MALFORMATION [None]
  - STILLBIRTH [None]
